FAERS Safety Report 7326341-6 (Version None)
Quarter: 2011Q1

REPORT INFORMATION
  Report Type: 
  Country: None (occurrence: None)
  Receive Date: 20110302
  Receipt Date: 20110224
  Transmission Date: 20110831
  Serious: Yes (Hospitalization)
  Sender: FDA-Public Use
  Company Number: B0702426A

PATIENT

DRUGS (1)
  1. REVOLADE [Suspect]
     Indication: IDIOPATHIC THROMBOCYTOPENIC PURPURA
     Dosage: 25MG PER DAY
     Route: 048
     Dates: end: 20110222

REACTIONS (3)
  - OXYGEN SATURATION DECREASED [None]
  - CEREBRAL INFARCTION [None]
  - PULMONARY INFARCTION [None]
